FAERS Safety Report 5933000-0 (Version None)
Quarter: 2008Q4

REPORT INFORMATION
  Report Type: 
  Country: None (occurrence: None)
  Receive Date: 20081028
  Receipt Date: 20081022
  Transmission Date: 20090506
  Serious: Yes (Death)
  Sender: FDA-Public Use
  Company Number: JP-BRISTOL-MYERS SQUIBB COMPANY-14382121

PATIENT
  Age: 21 Year
  Sex: Male

DRUGS (6)
  1. VEPESID [Suspect]
     Indication: LYMPHOPROLIFERATIVE DISORDER
     Route: 041
  2. ENDOXAN [Concomitant]
     Route: 065
  3. ADRIACIN [Concomitant]
     Route: 042
  4. ONCOVIN [Concomitant]
     Route: 042
  5. PREDNISOLONE [Concomitant]
     Route: 065
  6. EPIRUBICIN HCL [Concomitant]

REACTIONS (1)
  - GASTROINTESTINAL HAEMORRHAGE [None]
